FAERS Safety Report 4607103-7 (Version None)
Quarter: 2005Q1

REPORT INFORMATION
  Report Type: 
  Country: None (occurrence: None)
  Receive Date: 20050310
  Receipt Date: 20050225
  Transmission Date: 20050727
  Serious: Yes (Death)
  Sender: FDA-Public Use
  Company Number: HQWYE736801MAR05

PATIENT
  Age: 14 Month
  Sex: Male
  Weight: 13.62 kg

DRUGS (3)
  1. PHENERGAN PLAIN [Suspect]
     Indication: COUGH
  2. EPINEPHRINE [Suspect]
     Indication: CROUP INFECTIOUS
  3. MOTRIN [Concomitant]

REACTIONS (2)
  - OROPHARYNGEAL SWELLING [None]
  - PHARYNGEAL OEDEMA [None]
